FAERS Safety Report 8528411-3 (Version None)
Quarter: 2012Q3

REPORT INFORMATION
  Report Type: 
  Country: None (occurrence: None)
  Receive Date: 20120722
  Receipt Date: 20120716
  Transmission Date: 20120928
  Serious: Yes (Hospitalization)
  Sender: FDA-Public Use
  Company Number: GXKR2011FR01214

PATIENT
  Sex: Male
  Weight: 36.6 kg

DRUGS (3)
  1. AZATHIOPRINE [Concomitant]
     Indication: CROHN'S DISEASE
     Dosage: 75 MG, QD
     Route: 048
     Dates: start: 20101221
  2. SOMATROPIN RDNA [Suspect]
     Indication: GROWTH HORMONE DEFICIENCY
     Dates: start: 20100831, end: 20101220
  3. MESALAMINE [Concomitant]
     Indication: CROHN'S DISEASE
     Dosage: 500 MG, QID
     Route: 048
     Dates: start: 20101221

REACTIONS (2)
  - SYSTEMIC INFLAMMATORY RESPONSE SYNDROME [None]
  - MULTI-VITAMIN DEFICIENCY [None]
